FAERS Safety Report 8203816-9 (Version None)
Quarter: 2012Q1

REPORT INFORMATION
  Report Type: 
  Country: None (occurrence: None)
  Receive Date: 20120308
  Receipt Date: 20120221
  Transmission Date: 20120608
  Serious: Yes (Disabling)
  Sender: FDA-Public Use
  Company Number: DSA_55203_2012

PATIENT
  Age: 64 Year
  Sex: Male

DRUGS (8)
  1. ALLOPURINOL [Suspect]
     Indication: HYPERURICAEMIA
     Dosage: 300 MG QD ORAL
     Route: 048
     Dates: start: 20070501
  2. CRESTOR [Concomitant]
  3. CITALOPRAM HYDROBROMIDE [Concomitant]
  4. ENALAPRIL MALEATE [Suspect]
     Indication: HYPERTENSION
     Dosage: 20 MG QD ORAL
     Route: 048
     Dates: start: 20031101
  5. ESKIM [Concomitant]
  6. RANITIDINE [Concomitant]
  7. SEQUACOR [Concomitant]
  8. ASPIRIN [Concomitant]

REACTIONS (2)
  - LEUKOPENIA [None]
  - CHEST PAIN [None]
